FAERS Safety Report 4973926-8 (Version None)
Quarter: 2006Q2

REPORT INFORMATION
  Report Type: 
  Country: None (occurrence: None)
  Receive Date: 20060417
  Receipt Date: 20060227
  Transmission Date: 20061013
  Serious: Yes (Life-Threatening, Other)
  Sender: FDA-Public Use
  Company Number: 2006UW03459

PATIENT
  Age: 16817 Day
  Sex: Male
  Weight: 72 kg

DRUGS (4)
  1. IRESSA [Suspect]
     Indication: NON-SMALL CELL LUNG CANCER METASTATIC
     Route: 048
     Dates: start: 20041228
  2. AMBIEN [Concomitant]
     Indication: INSOMNIA
     Dosage: 10 MG HS PRN
     Route: 048
     Dates: start: 20060103
  3. CLINDAMYCIN/BENZOYL PEROXIDE [Concomitant]
     Route: 061
     Dates: start: 20050225
  4. OXYCODONE [Concomitant]
     Indication: PAIN
     Dosage: 5 MG Q4-6H PRN
     Route: 048
     Dates: start: 20051108

REACTIONS (1)
  - PULMONARY EMBOLISM [None]
